FAERS Safety Report 21508264 (Version 1)
Quarter: 2022Q4

REPORT INFORMATION
  Report Type: Spontaneous
  Country: CN (occurrence: CN)
  Receive Date: 20221026
  Receipt Date: 20221026
  Transmission Date: 20230113
  Serious: Yes (Hospitalization, Other)
  Sender: FDA-Public Use
  Company Number: CN-PFIZER INC-PV202200088152

PATIENT
  Age: 9 Year
  Sex: Female
  Weight: 35 kg

DRUGS (7)
  1. CYTARABINE [Suspect]
     Active Substance: CYTARABINE
     Indication: Non-Hodgkin^s lymphoma
     Dosage: 0.036 G, 1X/DAY
     Route: 037
     Dates: start: 20220604, end: 20220604
  2. METHOTREXATE SODIUM [Suspect]
     Active Substance: METHOTREXATE SODIUM
     Indication: Non-Hodgkin^s lymphoma
     Dosage: 0.012 G
     Dates: start: 20220604, end: 20220604
  3. METHOTREXATE [Suspect]
     Active Substance: METHOTREXATE
     Indication: Neoplasm malignant
     Dosage: 20 MG, 1X/DAY
     Route: 048
     Dates: start: 20220604, end: 20220604
  4. DEXAMETHASONE SODIUM PHOSPHATE [Suspect]
     Active Substance: DEXAMETHASONE SODIUM PHOSPHATE
     Indication: Non-Hodgkin^s lymphoma
     Dosage: 4 MG, 1X/DAY
     Route: 037
     Dates: start: 20220604, end: 20220604
  5. VINCRISTINE SULFATE [Suspect]
     Active Substance: VINCRISTINE SULFATE
     Indication: Non-Hodgkin^s lymphoma
     Dosage: 1 MG, 1X/DAY
     Route: 040
     Dates: start: 20220604, end: 20220604
  6. SODIUM CHLORIDE [Concomitant]
     Active Substance: SODIUM CHLORIDE
     Indication: Vehicle solution use
     Dosage: 20 ML, 1X/DAY
     Route: 042
     Dates: start: 20220604, end: 20220604
  7. SODIUM CHLORIDE [Concomitant]
     Active Substance: SODIUM CHLORIDE
     Indication: Vehicle solution use
     Dosage: 5 ML, 1X/DAY
     Route: 037
     Dates: start: 20220604, end: 20220604

REACTIONS (5)
  - Infection [Unknown]
  - Gastrointestinal disorder [Unknown]
  - Diarrhoea [Recovered/Resolved]
  - Pyrexia [Recovered/Resolved]
  - Hepatic function abnormal [Unknown]

NARRATIVE: CASE EVENT DATE: 20220714
